FAERS Safety Report 6429178-5 (Version None)
Quarter: 2009Q4

REPORT INFORMATION
  Report Type: 
  Country: None (occurrence: None)
  Receive Date: 20091105
  Receipt Date: 20091102
  Transmission Date: 20100525
  Serious: Yes (Death, Hospitalization)
  Sender: FDA-Public Use
  Company Number: US-CELGENEUS-163-21880-09110106

PATIENT
  Sex: Male

DRUGS (3)
  1. REVLIMID [Suspect]
     Indication: MULTIPLE MYELOMA
     Route: 048
     Dates: start: 20090501, end: 20090101
  2. REVLIMID [Suspect]
     Route: 048
     Dates: start: 20080801, end: 20080101
  3. REVLIMID [Suspect]
     Route: 048
     Dates: start: 20090401, end: 20090101

REACTIONS (4)
  - CARDIAC ARREST [None]
  - DEATH [None]
  - MULTI-ORGAN FAILURE [None]
  - PNEUMONIA [None]
